FAERS Safety Report 5723595-4 (Version None)
Quarter: 2008Q2

REPORT INFORMATION
  Report Type: 
  Country: None (occurrence: None)
  Receive Date: 20080425
  Receipt Date: 20080123
  Transmission Date: 20081010
  Serious: Yes (Death)
  Sender: FDA-Public Use
  Company Number: 2008-BP-01435BP

PATIENT
  Age: 45 Year
  Sex: Male

DRUGS (12)
  1. APTIVUS [Suspect]
     Dosage: PO
     Route: 048
  2. ABC/3TC (ALL OTHER THERAPEUTIC PRODUCTS) [Suspect]
  3. T-20 (ENFUVIRTIDE) [Suspect]
  4. TMP-SMX (BACTRIM /00086101/) [Concomitant]
  5. FUROSEMIDE [Concomitant]
  6. ALDACTONE [Concomitant]
  7. CASPOFUNGIN (CASPOFUNGIN) [Concomitant]
  8. RAMIPRIL [Concomitant]
  9. CEFTAZIDINE (CEFTAZIDIME) [Concomitant]
  10. IMIPENEM (IMIPENEM) [Concomitant]
  11. AMIKACIN [Concomitant]
  12. VANCOMYCIN HCL [Concomitant]

REACTIONS (1)
  - LIVER DISORDER [None]
